FAERS Safety Report 7220753-7 (Version None)
Quarter: 2011Q1

REPORT INFORMATION
  Report Type: 
  Country: None (occurrence: None)
  Receive Date: 20110111
  Receipt Date: 20110103
  Transmission Date: 20110831
  Serious: Yes (Other)
  Sender: FDA-Public Use
  Company Number: US-PFIZER INC-US-WYE-H17478110

PATIENT
  Sex: Female
  Weight: 113.4 kg

DRUGS (21)
  1. EFFEXOR [Suspect]
     Indication: BIPOLAR DISORDER
  2. NEURONTIN [Suspect]
     Route: 065
  3. CLONAZEPAM [Concomitant]
     Route: 065
  4. LAMICTAL [Concomitant]
     Route: 065
  5. TAMOXIFEN [Suspect]
     Indication: BREAST CANCER
     Dosage: UNK
     Route: 065
     Dates: start: 20100101
  6. ABILIFY [Concomitant]
     Route: 065
  7. IMURAN [Concomitant]
     Route: 065
  8. EFFEXOR [Suspect]
     Indication: POST-TRAUMATIC STRESS DISORDER
  9. SINGULAIR [Concomitant]
     Route: 065
  10. EFFEXOR [Suspect]
     Indication: ANXIETY
     Dosage: 75 MG, 1X/DAY
     Route: 048
     Dates: start: 20080101, end: 20100801
  11. BYSTOLIC [Concomitant]
     Route: 065
  12. KLOR-CON [Concomitant]
     Route: 065
  13. ESTRADIOL [Concomitant]
     Route: 065
  14. EFFEXOR [Suspect]
     Indication: DEPRESSION
  15. SAVELLA [Concomitant]
     Route: 065
  16. LASIX [Concomitant]
     Route: 065
  17. LEVOTHYROXINE [Concomitant]
     Route: 065
  18. ASACOL [Concomitant]
     Route: 065
  19. TRAMADOL [Concomitant]
     Route: 065
  20. CYCLOBENZAPRINE [Concomitant]
     Route: 065
  21. ADVAIR [Concomitant]
     Route: 065

REACTIONS (6)
  - HOT FLUSH [None]
  - BREAST CANCER [None]
  - INSOMNIA [None]
  - DRUG WITHDRAWAL SYNDROME [None]
  - SUICIDAL IDEATION [None]
  - MEMORY IMPAIRMENT [None]
